FAERS Safety Report 10051648 (Version 1)
Quarter: 2014Q2

REPORT INFORMATION
  Report Type: Spontaneous
  Country: US (occurrence: US)
  Receive Date: 20140401
  Receipt Date: 20140401
  Transmission Date: 20141212
  Serious: Yes (Other)
  Sender: FDA-Public Use
  Company Number: US-TEVA-472567USA

PATIENT
  Age: 38 Year
  Sex: Female

DRUGS (4)
  1. PARAGARD 380A [Suspect]
     Indication: CONTRACEPTION
     Route: 015
     Dates: start: 200410, end: 20140314
  2. EFFEXOR [Concomitant]
     Indication: ANXIETY
  3. MOBIC [Concomitant]
     Indication: BACK PAIN
  4. LISINOPRIL [Concomitant]
     Indication: HYPERTENSION

REACTIONS (4)
  - Embedded device [Not Recovered/Not Resolved]
  - Device breakage [Not Recovered/Not Resolved]
  - Medical device complication [Not Recovered/Not Resolved]
  - Dysmenorrhoea [Not Recovered/Not Resolved]
